FAERS Safety Report 4926122-4 (Version None)
Quarter: 2006Q1

REPORT INFORMATION
  Report Type: 
  Country: None (occurrence: None)
  Receive Date: 20060228
  Receipt Date: 20050818
  Transmission Date: 20060701
  Serious: No
  Sender: FDA-Public Use
  Company Number: US-GLAXOSMITHKLINE-A0571297A

PATIENT
  Age: 34 Year
  Sex: Female
  Weight: 95.5 kg

DRUGS (2)
  1. LAMICTAL [Suspect]
     Indication: BIPOLAR II DISORDER
     Dosage: 25MG ALTERNATE DAYS
     Route: 048
     Dates: start: 20050806, end: 20050809
  2. ZOLOFT [Concomitant]
     Dosage: 300MG PER DAY

REACTIONS (1)
  - RASH [None]
